FAERS Safety Report 17361051 (Version 4)
Quarter: 2020Q1

REPORT INFORMATION
  Report Type: Spontaneous
  Country: US (occurrence: US)
  Receive Date: 20200203
  Receipt Date: 20200214
  Transmission Date: 20200409
  Serious: No
  Sender: FDA-Public Use
  Company Number: US-SA-2020SA027921

PATIENT
  Age: 30 Year
  Sex: Female

DRUGS (1)
  1. CABLIVI [Suspect]
     Active Substance: CAPLACIZUMAB-YHDP
     Indication: THROMBOTIC MICROANGIOPATHY
     Dosage: 11 MG, QD
     Route: 058
     Dates: start: 20200106, end: 20200204

REACTIONS (3)
  - Vaginal haemorrhage [Recovered/Resolved]
  - Fatigue [Unknown]
  - Product use in unapproved indication [Unknown]
